FAERS Safety Report 9330752 (Version 2)
Quarter: 2013Q3

REPORT INFORMATION
  Report Type: Report from Study
  Country: JP (occurrence: JP)
  Receive Date: 20130605
  Receipt Date: 20130819
  Transmission Date: 20140515
  Serious: Yes (Death, Hospitalization)
  Sender: FDA-Public Use
  Company Number: JP-AMGEN-JPNCT2013039496

PATIENT
  Age: 80 Year
  Sex: Female
  Weight: 48 kg

DRUGS (28)
  1. DARBEPOETIN ALFA [Suspect]
     Indication: NEPHROGENIC ANAEMIA
     Dosage: 30 MUG, Q2WK
     Route: 040
     Dates: start: 20101027, end: 20101124
  2. DARBEPOETIN ALFA [Suspect]
     Dosage: 20 MUG, QD
     Route: 040
     Dates: start: 20101208, end: 20101208
  3. DARBEPOETIN ALFA [Suspect]
     Dosage: 30 MUG, QD
     Route: 040
     Dates: start: 20110202, end: 20110202
  4. DARBEPOETIN ALFA [Suspect]
     Dosage: 30 MUG, QD
     Route: 040
     Dates: start: 20110216, end: 20110216
  5. DARBEPOETIN ALFA [Suspect]
     Dosage: 30 MUG, QD
     Route: 040
     Dates: start: 20110316, end: 20110316
  6. DARBEPOETIN ALFA [Suspect]
     Dosage: 30 MUG, QD
     Route: 040
     Dates: start: 20110518, end: 20110518
  7. DARBEPOETIN ALFA [Suspect]
     Dosage: 30 MUG, QD
     Route: 040
     Dates: start: 20110601, end: 20110601
  8. DARBEPOETIN ALFA [Suspect]
     Dosage: 20 MUG, QD
     Route: 040
     Dates: start: 20110615, end: 20110615
  9. DARBEPOETIN ALFA [Suspect]
     Dosage: 30 MUG, QD
     Route: 040
     Dates: start: 20110629, end: 20110629
  10. DARBEPOETIN ALFA [Suspect]
     Dosage: 30 MUG, QD
     Route: 040
     Dates: start: 20110928, end: 20110928
  11. DARBEPOETIN ALFA [Suspect]
     Dosage: 60 MUG, QD
     Route: 040
     Dates: start: 20111012, end: 20111012
  12. DARBEPOETIN ALFA [Suspect]
     Dosage: 30 MUG, QD
     Route: 040
     Dates: start: 20111109, end: 20111109
  13. DARBEPOETIN ALFA [Suspect]
     Dosage: 30 MUG, Q2WK
     Route: 040
     Dates: start: 20120111, end: 20120125
  14. DARBEPOETIN ALFA [Suspect]
     Dosage: 30 MUG, Q2WK
     Route: 040
     Dates: start: 20120222, end: 20120307
  15. DARBEPOETIN ALFA [Suspect]
     Dosage: 60 MUG, QD
     Route: 040
     Dates: start: 20120328, end: 20120328
  16. THYRADIN S [Concomitant]
     Dosage: UNK
     Route: 048
  17. OMEPRAL [Concomitant]
     Dosage: UNK
     Route: 048
  18. ALFAROL [Concomitant]
     Dosage: UNK
     Route: 048
  19. HALFDIGOXIN [Concomitant]
     Dosage: UNK
     Route: 048
  20. ARTIST [Concomitant]
     Dosage: UNK
     Route: 048
  21. LUPRAC [Concomitant]
     Indication: NEPHROSCLEROSIS
     Dosage: 4 MG, UNK
     Route: 048
  22. LUPRAC [Concomitant]
     Dosage: UNK
     Route: 048
  23. CONIEL [Concomitant]
     Dosage: UNK
     Route: 048
  24. MAINTATE [Concomitant]
     Dosage: UNK
     Route: 048
  25. PURSENNID [Concomitant]
     Dosage: UNK
     Route: 048
  26. GANATON [Concomitant]
     Dosage: UNK
     Route: 048
  27. LASIX [Concomitant]
     Indication: NEPHROSCLEROSIS
     Dosage: UNK
     Route: 048
     Dates: end: 20110615
  28. ZETIA [Concomitant]
     Dosage: UNK
     Route: 048

REACTIONS (8)
  - Sudden death [Fatal]
  - Appendicitis [Recovering/Resolving]
  - Cellulitis [Recovering/Resolving]
  - Blood urea increased [Recovered/Resolved]
  - Blood creatinine increased [Recovered/Resolved]
  - Hyperuricaemia [Recovering/Resolving]
  - Gastrooesophageal reflux disease [Recovering/Resolving]
  - Seasonal allergy [Recovering/Resolving]
